FAERS Safety Report 6530712-5 (Version None)
Quarter: 2010Q1

REPORT INFORMATION
  Report Type: 
  Country: None (occurrence: None)
  Receive Date: 20100108
  Receipt Date: 20090513
  Transmission Date: 20100710
  Serious: No
  Sender: FDA-Public Use
  Company Number: A0759486A

PATIENT
  Age: 65 Year
  Sex: Male

DRUGS (5)
  1. LOVAZA [Suspect]
     Dosage: 1CAP SINGLE DOSE
     Route: 048
  2. CRESTOR [Concomitant]
  3. POTASSIUM [Concomitant]
  4. LISINOPRIL [Concomitant]
  5. PLAVIX [Concomitant]

REACTIONS (2)
  - NAUSEA [None]
  - PRODUCT QUALITY ISSUE [None]
